FAERS Safety Report 14309886 (Version 1)
Quarter: 2017Q4

REPORT INFORMATION
  Report Type: Spontaneous
  Country: FR (occurrence: FR)
  Receive Date: 20171220
  Receipt Date: 20171220
  Transmission Date: 20180321
  Serious: Yes (Hospitalization, Other)
  Sender: FDA-Public Use
  Company Number: FR-JNJFOC-20171218248

PATIENT
  Age: 47 Year
  Sex: Female

DRUGS (14)
  1. PARKINANE LP [Concomitant]
     Active Substance: TRIHEXYPHENIDYL HYDROCHLORIDE
     Indication: PRODUCT USED FOR UNKNOWN INDICATION
     Route: 048
  2. CERIS [Concomitant]
     Active Substance: TROSPIUM CHLORIDE
     Indication: URINARY INCONTINENCE
     Route: 048
  3. ZOLPIDEM [Concomitant]
     Active Substance: ZOLPIDEM\ZOLPIDEM TARTRATE
     Indication: INSOMNIA
     Route: 048
  4. EPITOMAX [Suspect]
     Active Substance: TOPIRAMATE
     Indication: MENTAL DISORDER
     Route: 048
  5. NOZINAN [Suspect]
     Active Substance: LEVOMEPROMAZINE
     Indication: MENTAL DISORDER
     Route: 048
  6. STILNOX [Concomitant]
     Active Substance: ZOLPIDEM TARTRATE
     Indication: INSOMNIA
     Route: 048
  7. DOLIPRANE [Concomitant]
     Active Substance: ACETAMINOPHEN
     Indication: PAIN
     Route: 048
  8. TOVIAZ [Concomitant]
     Active Substance: FESOTERODINE FUMARATE
     Indication: URINARY INCONTINENCE
     Route: 048
  9. ABILIFY [Suspect]
     Active Substance: ARIPIPRAZOLE
     Indication: MENTAL DISORDER
     Dosage: 15 MG 2 TABLETS PER DAY
     Route: 048
  10. LEVOMEPROMAZINE [Suspect]
     Active Substance: LEVOMEPROMAZINE
     Indication: MENTAL DISORDER
     Route: 048
  11. OLANZAPINE. [Suspect]
     Active Substance: OLANZAPINE
     Indication: MENTAL DISORDER
     Route: 048
  12. SULFARLEM [Concomitant]
     Active Substance: ANETHOLTRITHION
     Indication: PRODUCT USED FOR UNKNOWN INDICATION
     Route: 048
  13. ZYPREXA [Suspect]
     Active Substance: OLANZAPINE
     Indication: MENTAL DISORDER
     Route: 048
  14. PAROXETINE ARROW [Suspect]
     Active Substance: PAROXETINE
     Indication: MENTAL DISORDER
     Route: 048

REACTIONS (3)
  - Off label use [Unknown]
  - Pulmonary embolism [Recovered/Resolved]
  - Product use in unapproved indication [Unknown]

NARRATIVE: CASE EVENT DATE: 20151116
